FAERS Safety Report 8796900 (Version 2)
Quarter: 2012Q4

REPORT INFORMATION
  Report Type: 
  Country: CA (occurrence: CA)
  Receive Date: 20120920
  Receipt Date: 20121015
  Transmission Date: 20130627
  Serious: Yes (Other)
  Sender: FDA-Public Use
  Company Number: PHHY2012CA080213

PATIENT
  Age: 55 Year
  Sex: Male

DRUGS (10)
  1. ACLASTA [Suspect]
     Indication: OSTEOPOROSIS
     Dosage: 5 mg, UNK
     Route: 042
     Dates: start: 20120726
  2. DILAUDID [Concomitant]
     Dosage: 0.5 ml, Q4H
     Dates: start: 20100107
  3. PENTASA [Concomitant]
     Dosage: 4 DF, BID
     Dates: start: 20100107
  4. METOCLOPRAMIDE HYDROCHLORIDE [Concomitant]
     Dosage: 2 mg, Q6H
     Dates: start: 20100107
  5. PANTOLOC [Concomitant]
     Dosage: 1 DF, BID
     Dates: start: 20100107
  6. METRONIDAZOLE [Concomitant]
     Dosage: 1 DF, BID
     Dates: start: 20100107
  7. DELATESTRYL [Concomitant]
     Dosage: 1 ml, 3 weeks
  8. ATIVAN [Concomitant]
     Dosage: 1 DF, TID
     Route: 060
     Dates: start: 20070320
  9. HORMONES [Concomitant]
  10. HYDROMORPHONE [Concomitant]
     Indication: PAIN

REACTIONS (9)
  - Tinnitus [Recovered/Resolved]
  - Crohn^s disease [Unknown]
  - Myopia [Unknown]
  - Astigmatism [Unknown]
  - Presbyopia [Unknown]
  - Endocrine disorder [Unknown]
  - Gastrooesophageal reflux disease [Unknown]
  - Oesophagitis [Unknown]
  - Influenza like illness [Recovered/Resolved]
